FAERS Safety Report 25455508 (Version 1)
Quarter: 2025Q2

REPORT INFORMATION
  Report Type: Report from Study
  Country: IN (occurrence: IN)
  Receive Date: 20250619
  Receipt Date: 20250619
  Transmission Date: 20250716
  Serious: Yes (Death)
  Sender: ROCHE
  Company Number: IN-ROCHE-10000259469

PATIENT
  Age: 66 Year
  Sex: Male

DRUGS (1)
  1. TECENTRIQ [Suspect]
     Active Substance: ATEZOLIZUMAB
     Indication: Lung cancer metastatic
     Route: 042
     Dates: start: 20241107

REACTIONS (4)
  - Off label use [Unknown]
  - Vital functions abnormal [Unknown]
  - Platelet disorder [Unknown]
  - Death [Fatal]

NARRATIVE: CASE EVENT DATE: 20250412
